FAERS Safety Report 18576187 (Version 6)
Quarter: 2021Q1

REPORT INFORMATION
  Report Type: Spontaneous
  Country: HU (occurrence: HU)
  Receive Date: 20201203
  Receipt Date: 20210106
  Transmission Date: 20210419
  Serious: Yes (Other)
  Sender: FDA-Public Use
  Company Number: NVSC2020HU312152

PATIENT
  Age: 28 Year
  Sex: Female

DRUGS (3)
  1. ADALIMUMAB [Suspect]
     Active Substance: ADALIMUMAB
     Indication: PSORIASIS
     Dosage: UNK
     Route: 065
     Dates: start: 20180509, end: 2018
  2. USTEKINUMAB [Concomitant]
     Active Substance: USTEKINUMAB
     Indication: PSORIASIS
     Dosage: UNK
     Route: 058
     Dates: start: 2018
  3. GUSELKUMAB [Concomitant]
     Active Substance: GUSELKUMAB
     Indication: PSORIASIS
     Dosage: UNK
     Route: 065
     Dates: start: 201910

REACTIONS (6)
  - Psoriasis [Recovered/Resolved]
  - Otitis media [Unknown]
  - Skin disorder [Unknown]
  - Drug ineffective [Unknown]
  - Condition aggravated [Unknown]
  - Therapeutic product effect incomplete [Unknown]

NARRATIVE: CASE EVENT DATE: 2018
